FAERS Safety Report 8591917-5 (Version None)
Quarter: 2012Q3

REPORT INFORMATION
  Report Type: 
  Country: None (occurrence: None)
  Receive Date: 20120814
  Receipt Date: 20120713
  Transmission Date: 20120928
  Serious: Yes (Hospitalization)
  Sender: FDA-Public Use
  Company Number: DK-ELI_LILLY_AND_COMPANY-DK201206007327

PATIENT
  Sex: Female
  Weight: 55 kg

DRUGS (4)
  1. EFFIENT [Suspect]
     Indication: ANGINA PECTORIS
     Dosage: 60 MG, SINGLE LOADING DOSE
     Dates: start: 20120315
  2. EFFIENT [Suspect]
     Dosage: 5 MG, QD
     Dates: end: 20120415
  3. ASPIRIN [Concomitant]
     Dosage: 300-500MG LOADING DOSE
  4. ASPIRIN [Concomitant]
     Dosage: 100 MG, QD

REACTIONS (2)
  - THROMBOSIS IN DEVICE [None]
  - ACUTE MYOCARDIAL INFARCTION [None]
